FAERS Safety Report 9372955 (Version 1)
Quarter: 2013Q2

REPORT INFORMATION
  Report Type: Spontaneous
  Country: IT (occurrence: None)
  Receive Date: 20130624
  Receipt Date: 20130624
  Transmission Date: 20140414
  Serious: Yes (Hospitalization)
  Sender: FDA-Public Use
  Company Number: IMP_06723_2013

PATIENT
  Age: 78 Year
  Sex: Female

DRUGS (1)
  1. DIGOXIN (DIGOXIN) [Suspect]
     Indication: PRODUCT USED FOR UNKNOWN INDICATION

REACTIONS (9)
  - Renal failure acute [None]
  - Hyperkalaemia [None]
  - Hyponatraemia [None]
  - Systolic dysfunction [None]
  - Arteriosclerosis coronary artery [None]
  - Toxicity to various agents [None]
  - Arrhythmia [None]
  - Bradycardia [None]
  - Atrioventricular block complete [None]
